FAERS Safety Report 21281771 (Version 3)
Quarter: 2022Q3

REPORT INFORMATION
  Report Type: Other
  Country: US (occurrence: US)
  Receive Date: 20220901
  Receipt Date: 20220926
  Transmission Date: 20221027
  Serious: Yes (Death)
  Sender: FDA-Public Use
  Company Number: US-TOLMAR, INC.-22US036306

PATIENT
  Sex: Male
  Weight: 72.5 kg

DRUGS (3)
  1. ELIGARD [Suspect]
     Active Substance: LEUPROLIDE ACETATE
     Indication: Prostate cancer
     Dosage: 22.5 MILLIGRAM, Q 1 MONTH
     Route: 058
     Dates: start: 20220517
  2. ELIGARD [Suspect]
     Active Substance: LEUPROLIDE ACETATE
     Dosage: 22.5 MILLIGRAM, Q 1 MONTH
     Route: 058
     Dates: start: 20210630
  3. PROLIA [Concomitant]
     Active Substance: DENOSUMAB
     Indication: Bone density abnormal

REACTIONS (2)
  - Death [Fatal]
  - Off label use [Unknown]
